FAERS Safety Report 5255600-6 (Version None)
Quarter: 2007Q1

REPORT INFORMATION
  Report Type: 
  Country: None (occurrence: None)
  Receive Date: 20070305
  Receipt Date: 20060530
  Transmission Date: 20070707
  Serious: Yes (Hospitalization)
  Sender: FDA-Public Use
  Company Number: US-BOEHRINGER INGELHEIM GMBH, GERMANY-2006-UK-02246UK

PATIENT
  Sex: Female
  Weight: 54.9 kg

DRUGS (6)
  1. AGGRENOX [Suspect]
     Indication: CEREBROVASCULAR ACCIDENT PROPHYLAXIS
     Route: 048
     Dates: start: 20060421, end: 20060421
  2. MICARDIS [Suspect]
     Indication: CEREBROVASCULAR ACCIDENT PROPHYLAXIS
     Route: 048
     Dates: start: 20060421, end: 20060421
  3. CLOPIDOGREL [Suspect]
     Indication: CEREBROVASCULAR ACCIDENT PROPHYLAXIS
     Route: 048
     Dates: start: 20060421, end: 20060421
  4. HYDROCHLORITHIAZIDE [Concomitant]
     Indication: HYPERTENSION
     Route: 048
  5. NORTRIPTYLINE HCL [Concomitant]
     Indication: HEADACHE
     Route: 048
     Dates: start: 20060419
  6. AMBIEN [Concomitant]
     Indication: INSOMNIA
     Route: 048

REACTIONS (3)
  - FACIAL PARESIS [None]
  - HEADACHE [None]
  - MUSCULAR WEAKNESS [None]
